FAERS Safety Report 11937091 (Version 2)
Quarter: 2016Q1

REPORT INFORMATION
  Report Type: Not Available
  Country: ES (occurrence: ES)
  Receive Date: 20160121
  Receipt Date: 20160331
  Transmission Date: 20160526
  Serious: Yes (Other)
  Sender: FDA-Public Use
  Company Number: ES-MUNDIPHARMA DS AND PHARMACOVIGILANCE-GBR-2016-0033515

PATIENT
  Age: 34 Year
  Sex: Female

DRUGS (12)
  1. METASEDIN [Concomitant]
  2. NOLOTIL                            /06276702/ [Concomitant]
  3. TARGIN 20 MG/10 MG COMPRIMIDOS DE LIBERACI?PROLONGADA [Suspect]
     Active Substance: NALOXONE HYDROCHLORIDE\OXYCODONE HYDROCHLORIDE
     Indication: PRODUCT USED FOR UNKNOWN INDICATION
     Dosage: 3 DF, Q12H
     Route: 048
     Dates: start: 20150528, end: 20151125
  4. HIBOR [Concomitant]
     Active Substance: BEMIPARIN SODIUM
  5. VENLAFAXINE [Concomitant]
     Active Substance: VENLAFAXINE HYDROCHLORIDE
  6. SECALIP [Concomitant]
     Active Substance: FENOFIBRATE
  7. ABSTRAL [Suspect]
     Active Substance: FENTANYL CITRATE
     Indication: PRODUCT USED FOR UNKNOWN INDICATION
     Dosage: UNK UNK, Q8H
     Route: 060
     Dates: start: 20150528, end: 20151125
  8. PITAVASTATIN [Concomitant]
     Active Substance: PITAVASTATIN
  9. CATAPRESAN                         /00171101/ [Concomitant]
     Active Substance: CLONIDINE
  10. ACTIQ [Concomitant]
     Active Substance: FENTANYL CITRATE
  11. DEXKETOPROFEN TROMETAMOL [Concomitant]
     Active Substance: DEXKETOPROFEN TROMETAMOL
  12. MIDAZOLAM [Concomitant]
     Active Substance: MIDAZOLAM\MIDAZOLAM HYDROCHLORIDE

REACTIONS (5)
  - Flight of ideas [Unknown]
  - Affect lability [Unknown]
  - Insomnia [Unknown]
  - Nervous system disorder [Unknown]
  - Drug abuse [Unknown]

NARRATIVE: CASE EVENT DATE: 20151130
